FAERS Safety Report 8106265-7 (Version None)
Quarter: 2012Q1

REPORT INFORMATION
  Report Type: 
  Country: None (occurrence: None)
  Receive Date: 20120130
  Receipt Date: 20120119
  Transmission Date: 20120608
  Serious: Yes (Other)
  Sender: FDA-Public Use
  Company Number: 2012SP003573

PATIENT
  Age: 26 Year
  Sex: Female

DRUGS (1)
  1. CHORIONIC GONADOTROPIN [Suspect]
     Indication: INFERTILITY

REACTIONS (6)
  - JUGULAR VEIN THROMBOSIS [None]
  - MATERNAL EXPOSURE BEFORE PREGNANCY [None]
  - VAGINAL HAEMORRHAGE [None]
  - SELECTIVE ABORTION [None]
  - OVARIAN HYPERSTIMULATION SYNDROME [None]
  - MULTIPLE PREGNANCY [None]
